FAERS Safety Report 5476533-6 (Version None)
Quarter: 2007Q3

REPORT INFORMATION
  Report Type: 
  Country: None (occurrence: None)
  Receive Date: 20070926
  Receipt Date: 20070418
  Transmission Date: 20080115
  Serious: Yes (Other)
  Sender: FDA-Public Use
  Company Number: 2007031073

PATIENT
  Age: 2 Month

DRUGS (1)
  1. ZYRTEC [Suspect]
     Dosage: ORAL
     Route: 048

REACTIONS (7)
  - ABDOMINAL PAIN UPPER [None]
  - ACCOMMODATION DISORDER [None]
  - CRYING [None]
  - DRY MOUTH [None]
  - IRRITABILITY [None]
  - MEDICATION ERROR [None]
  - RHINORRHOEA [None]
